FAERS Safety Report 25856391 (Version 1)
Quarter: 2025Q3

REPORT INFORMATION
  Report Type: Spontaneous
  Country: CN (occurrence: CN)
  Receive Date: 20250928
  Receipt Date: 20250928
  Transmission Date: 20251021
  Serious: Yes (Other)
  Sender: ALEXION PHARMACEUTICALS
  Company Number: CN-ASTRAZENECA-202509CHN022843CN

PATIENT
  Age: 66 Year
  Sex: Male
  Weight: 63 kg

DRUGS (1)
  1. BRILINTA [Suspect]
     Active Substance: TICAGRELOR
     Indication: Arteriosclerosis coronary artery
     Dosage: 60 MILLIGRAM, BID
     Dates: start: 20250905, end: 20250925

REACTIONS (2)
  - Platelet count decreased [Unknown]
  - Ecchymosis [Unknown]

NARRATIVE: CASE EVENT DATE: 20250920
